FAERS Safety Report 9316743 (Version 1)
Quarter: 2013Q2

REPORT INFORMATION
  Report Type: Spontaneous
  Country: US (occurrence: US)
  Receive Date: 20130530
  Receipt Date: 20130530
  Transmission Date: 20140414
  Serious: No
  Sender: FDA-Public Use
  Company Number: US-MYLANLABS-2012S1008913

PATIENT
  Age: 88 Year
  Sex: Female
  Weight: 54.43 kg

DRUGS (8)
  1. ZOLPIDEM TARTRATE TABLETS [Suspect]
     Indication: INSOMNIA
     Route: 048
     Dates: start: 20120426, end: 20120426
  2. COREG [Concomitant]
     Route: 048
  3. DILTIAZEM [Concomitant]
     Route: 048
  4. CLONIDINE [Concomitant]
     Route: 048
  5. PLAVIX [Concomitant]
     Route: 048
  6. ASA [Concomitant]
     Route: 048
  7. GABAPENTIN [Concomitant]
     Route: 048
  8. RANITIDINE [Concomitant]
     Route: 048

REACTIONS (4)
  - Throat irritation [Recovered/Resolved]
  - Glossodynia [Recovered/Resolved]
  - Product quality issue [None]
  - Product substitution issue [None]
